FAERS Safety Report 5792989-3 (Version None)
Quarter: 2008Q2

REPORT INFORMATION
  Report Type: 
  Country: None (occurrence: None)
  Receive Date: 20080627
  Receipt Date: 20080613
  Transmission Date: 20081010
  Serious: No
  Sender: FDA-Public Use
  Company Number: PHHY2008JP02332

PATIENT
  Sex: Male
  Weight: 61 kg

DRUGS (3)
  1. TEGRETOL [Suspect]
     Indication: TRIGEMINAL NEURALGIA
     Route: 048
  2. BLOPRESS [Concomitant]
     Indication: HYPERTENSION
     Route: 048
  3. ADALAT [Concomitant]
     Indication: HYPERTENSION
     Route: 048

REACTIONS (1)
  - DRUG ERUPTION [None]
